FAERS Safety Report 18126423 (Version 1)
Quarter: 2020Q3

REPORT INFORMATION
  Report Type: Spontaneous
  Country: CA (occurrence: CA)
  Receive Date: 20200808
  Receipt Date: 20200808
  Transmission Date: 20201103
  Serious: Yes (Other)
  Sender: FDA-Public Use
  Company Number: NVSC2020CA218676

PATIENT
  Sex: Female

DRUGS (6)
  1. MEKINIST [Suspect]
     Active Substance: TRAMETINIB DIMETHYL SULFOXIDE
     Dosage: 1 DF, QD
     Route: 065
     Dates: start: 20200128, end: 20200225
  2. TAFINLAR [Suspect]
     Active Substance: DABRAFENIB MESYLATE
     Dosage: 2 DF, BID
     Route: 065
     Dates: start: 20191125, end: 20191227
  3. TAFINLAR [Suspect]
     Active Substance: DABRAFENIB MESYLATE
     Indication: PRODUCT USED FOR UNKNOWN INDICATION
     Dosage: 2 DF, BID (2 CAPSULES TWICE A DAY FOR 12 HOURS)
     Route: 065
     Dates: start: 20190525, end: 20191007
  4. MEKINIST [Suspect]
     Active Substance: TRAMETINIB DIMETHYL SULFOXIDE
     Dosage: 1 DF, QD
     Route: 065
     Dates: start: 20191125, end: 20191227
  5. TAFINLAR [Suspect]
     Active Substance: DABRAFENIB MESYLATE
     Dosage: 2 DF, BID
     Route: 065
     Dates: start: 20200128, end: 20200225
  6. MEKINIST [Suspect]
     Active Substance: TRAMETINIB DIMETHYL SULFOXIDE
     Indication: PRODUCT USED FOR UNKNOWN INDICATION
     Dosage: 1 DF, QD (1 TABLET, ONCE A DAY, TOOK IT IN THE EVENING)
     Route: 065
     Dates: start: 20190525, end: 20191007

REACTIONS (14)
  - Abdominal pain upper [Unknown]
  - Hepatitis [Unknown]
  - Lip swelling [Unknown]
  - Hyperhidrosis [Unknown]
  - Rash [Unknown]
  - Chills [Unknown]
  - Urticaria [Unknown]
  - Arthralgia [Unknown]
  - Hepatic enzyme increased [Unknown]
  - Dyspepsia [Unknown]
  - Swelling [Unknown]
  - Pruritus [Unknown]
  - Blood pressure decreased [Unknown]
  - Mouth swelling [Unknown]

NARRATIVE: CASE EVENT DATE: 201912
